FAERS Safety Report 23832142 (Version 4)
Quarter: 2024Q3

REPORT INFORMATION
  Report Type: Spontaneous
  Country: JP (occurrence: JP)
  Receive Date: 20240508
  Receipt Date: 20240906
  Transmission Date: 20241016
  Serious: Yes (Hospitalization, Other)
  Sender: ELI LILLY AND CO
  Company Number: JP-ELI_LILLY_AND_COMPANY-JP202405001037

PATIENT
  Age: 77 Year
  Sex: Female
  Weight: 42 kg

DRUGS (4)
  1. CYRAMZA [Suspect]
     Active Substance: RAMUCIRUMAB
     Indication: Lung adenocarcinoma recurrent
     Dosage: 475 MG, OTHER
     Route: 041
     Dates: start: 20230406, end: 20240125
  2. ERLOTINIB HYDROCHLORIDE [Suspect]
     Active Substance: ERLOTINIB HYDROCHLORIDE
     Indication: Lung adenocarcinoma recurrent
     Dosage: 150 MG, DAILY
     Route: 048
     Dates: start: 20230406, end: 20240320
  3. ERLOTINIB HYDROCHLORIDE [Suspect]
     Active Substance: ERLOTINIB HYDROCHLORIDE
     Dosage: 100 MG, DAILY
     Route: 048
     Dates: start: 20240321
  4. MINOCYCLINE HYDROCHLORIDE [Concomitant]
     Active Substance: MINOCYCLINE HYDROCHLORIDE
     Indication: Skin disorder prophylaxis
     Dosage: 50 MG, BID
     Route: 048
     Dates: start: 20230406, end: 20240522

REACTIONS (7)
  - Colitis ischaemic [Recovered/Resolved]
  - C-reactive protein increased [Unknown]
  - Cardiac failure congestive [Recovered/Resolved]
  - Pyrexia [Unknown]
  - Ventricular hypokinesia [Unknown]
  - Iron deficiency anaemia [Not Recovered/Not Resolved]
  - Hypothyroidism [Not Recovered/Not Resolved]

NARRATIVE: CASE EVENT DATE: 20230413
